FAERS Safety Report 12198310 (Version 1)
Quarter: 2016Q1

REPORT INFORMATION
  Report Type: Spontaneous
  Country: US (occurrence: None)
  Receive Date: 20160321
  Receipt Date: 20160321
  Transmission Date: 20160526
  Serious: Yes (Other)
  Sender: FDA-Public Use
  Company Number: None

PATIENT
  Age: 61 Year
  Sex: Female
  Weight: 78.93 kg

DRUGS (2)
  1. MULTIVITE VITAMINS [Concomitant]
  2. TRANSDERM SCOP [Suspect]
     Active Substance: SCOPOLAMINE
     Indication: SALIVARY GLAND DISORDER
     Dosage: 1 PATCH EVERY 72 HOURS APPLIED AS MEDICATED PATCH TO SKIN

REACTIONS (4)
  - Nausea [None]
  - Vomiting [None]
  - Dizziness [None]
  - Fatigue [None]

NARRATIVE: CASE EVENT DATE: 20160319
